FAERS Safety Report 9897148 (Version 5)
Quarter: 2014Q1

REPORT INFORMATION
  Report Type: Spontaneous
  Country: IL (occurrence: IL)
  Receive Date: 20140214
  Receipt Date: 20140312
  Transmission Date: 20141002
  Serious: Yes (Hospitalization)
  Sender: FDA-Public Use
  Company Number: IL-ROCHE-1344374

PATIENT
  Age: 35 Year
  Sex: Female

DRUGS (4)
  1. HERCEPTIN [Suspect]
     Indication: BREAST CANCER
     Route: 065
     Dates: start: 20140203
  2. PERJETA [Suspect]
     Indication: BREAST CANCER
     Route: 065
     Dates: start: 20140203
  3. GEMZAR [Suspect]
     Indication: BREAST CANCER METASTATIC
     Route: 065
     Dates: start: 20140217
  4. CISPLATIN [Concomitant]
     Indication: BREAST CANCER METASTATIC
     Route: 065
     Dates: start: 20140207

REACTIONS (9)
  - Blood pressure decreased [Recovered/Resolved]
  - Hepatic enzyme increased [Recovered/Resolved]
  - Bone pain [Unknown]
  - Rhabdomyolysis [Recovered/Resolved]
  - Pyrexia [Recovered/Resolved]
  - Diarrhoea [Recovered/Resolved]
  - White blood cell count decreased [Recovered/Resolved]
  - Haemoglobin decreased [Not Recovered/Not Resolved]
  - Neutrophil count decreased [Not Recovered/Not Resolved]
